FAERS Safety Report 15663186 (Version 1)
Quarter: 2018Q4

REPORT INFORMATION
  Report Type: Spontaneous
  Country: US (occurrence: US)
  Receive Date: 20181128
  Receipt Date: 20181128
  Transmission Date: 20190205
  Serious: No
  Sender: FDA-Public Use
  Company Number: US-SA-2018SA322718

PATIENT
  Age: 42 Year
  Sex: Female

DRUGS (1)
  1. FABRAZYME [Suspect]
     Active Substance: AGALSIDASE BETA
     Route: 042

REACTIONS (4)
  - Urticaria [Unknown]
  - Chest discomfort [Unknown]
  - Pruritus [Unknown]
  - Throat tightness [Unknown]
